FAERS Safety Report 4653369-7 (Version None)
Quarter: 2005Q2

REPORT INFORMATION
  Report Type: 
  Country: None (occurrence: None)
  Receive Date: 20050503
  Receipt Date: 20050420
  Transmission Date: 20051028
  Serious: Yes (Other)
  Sender: FDA-Public Use
  Company Number: SUS1-2005-00339

PATIENT
  Age: 10 Year
  Sex: Male

DRUGS (1)
  1. ADDERALL 10 [Suspect]
     Dosage: 30 MG, ONED DOSE, ORAL
     Route: 048

REACTIONS (3)
  - DYSPNOEA [None]
  - THROAT TIGHTNESS [None]
  - VISUAL DISTURBANCE [None]
